FAERS Safety Report 7115470-8 (Version None)
Quarter: 2010Q4

REPORT INFORMATION
  Report Type: 
  Country: None (occurrence: None)
  Receive Date: 20101122
  Receipt Date: 20101111
  Transmission Date: 20110411
  Serious: Yes (Other)
  Sender: FDA-Public Use
  Company Number: JP-ASTRAZENECA-2010SE50328

PATIENT
  Age: 21372 Day
  Sex: Female
  Weight: 51 kg

DRUGS (2)
  1. IRESSA [Suspect]
     Indication: NON-SMALL CELL LUNG CANCER
     Route: 048
     Dates: start: 20100421, end: 20100705
  2. IRESSA [Suspect]
     Route: 048
     Dates: start: 20100706, end: 20100824

REACTIONS (1)
  - LIVER DISORDER [None]
